FAERS Safety Report 8887669 (Version 2)
Quarter: 2012Q4

REPORT INFORMATION
  Report Type: 
  Country: US (occurrence: US)
  Receive Date: 20121106
  Receipt Date: 20121108
  Transmission Date: 20130627
  Serious: Yes (Death, Hospitalization)
  Sender: FDA-Public Use
  Company Number: US-B.I. PHARMACEUTICALS,INC./RIDGEFIELD-2012-BP-27163BP

PATIENT
  Age: 87 None
  Sex: Female
  Weight: 54 kg

DRUGS (5)
  1. PRADAXA [Suspect]
     Indication: ATRIAL FIBRILLATION
     Route: 048
     Dates: start: 201107, end: 201203
  2. PRADAXA [Suspect]
     Route: 048
     Dates: start: 201204, end: 201204
  3. BABY ASPIRIN [Concomitant]
     Indication: CARDIAC DISORDER
     Dosage: 81 mg
     Route: 048
  4. HYDROCODONE [Concomitant]
     Indication: BACK PAIN
     Route: 048
  5. UNKNOWN ANTIOBIOTIC [Concomitant]
     Indication: URINARY TRACT INFECTION
     Route: 048
     Dates: start: 201106, end: 201204

REACTIONS (7)
  - Death [Fatal]
  - Cardiac failure [Recovered/Resolved]
  - Hepatic failure [Unknown]
  - Cardiac failure [Unknown]
  - Renal failure [Recovered/Resolved]
  - Asthenia [Recovered/Resolved]
  - Decreased appetite [Recovered/Resolved]
